FAERS Safety Report 6142230-7 (Version None)
Quarter: 2009Q2

REPORT INFORMATION
  Report Type: 
  Country: None (occurrence: None)
  Receive Date: 20090403
  Receipt Date: 20080416
  Transmission Date: 20091009
  Serious: Yes (Hospitalization, Other)
  Sender: FDA-Public Use
  Company Number: US-ASTRAZENECA-2007UW25097

PATIENT
  Age: 14735 Day
  Sex: Female
  Weight: 49.9 kg

DRUGS (14)
  1. SEROQUEL [Suspect]
     Indication: DEPRESSION
     Dosage: 100MG - 400MG
     Route: 048
     Dates: start: 20020301, end: 20051001
  2. SEROQUEL [Suspect]
     Indication: ANXIETY
     Dosage: 100MG - 400MG
     Route: 048
     Dates: start: 20020301, end: 20051001
  3. SEROQUEL [Suspect]
     Dosage: 75-700 MG
     Route: 048
     Dates: end: 20050725
  4. SEROQUEL [Suspect]
     Dosage: 75-700 MG
     Route: 048
     Dates: end: 20050725
  5. LEXAPRO [Concomitant]
  6. GEODON [Concomitant]
  7. CHLORPROMAZINE HCL [Concomitant]
  8. GLUCOPHAGE [Concomitant]
  9. PREVACID [Concomitant]
  10. LIPITOR [Concomitant]
  11. COMBIVENT [Concomitant]
  12. LITHOBID [Concomitant]
  13. NASACORT AQ [Concomitant]
  14. RANITIDINE [Concomitant]

REACTIONS (17)
  - ABSCESS ORAL [None]
  - ALCOHOL ABUSE [None]
  - ANXIETY [None]
  - BIPOLAR DISORDER [None]
  - BONE PAIN [None]
  - CELLULITIS [None]
  - DEPRESSION [None]
  - DIABETES MELLITUS [None]
  - DYSLIPIDAEMIA [None]
  - ECCHYMOSIS [None]
  - GASTROOESOPHAGEAL REFLUX DISEASE [None]
  - HYPOTHYROIDISM [None]
  - IMPAIRED FASTING GLUCOSE [None]
  - SINUS DISORDER [None]
  - SLEEP APNOEA SYNDROME [None]
  - STRESS URINARY INCONTINENCE [None]
  - SUICIDE ATTEMPT [None]
